FAERS Safety Report 4830543-8 (Version None)
Quarter: 2005Q4

REPORT INFORMATION
  Report Type: 
  Country: None (occurrence: None)
  Receive Date: 20051115
  Receipt Date: 20051026
  Transmission Date: 20060501
  Serious: Yes (Hospitalization)
  Sender: FDA-Public Use
  Company Number: 2005-02125

PATIENT
  Age: 75 Year
  Sex: Female
  Weight: 68 kg

DRUGS (11)
  1. VELCADE [Suspect]
     Indication: MULTIPLE MYELOMA
     Dosage: 1.30 MG/M2, 2/WEEK, INTRAVENOUS
     Route: 042
     Dates: start: 20051007, end: 20051010
  2. COUMADIN [Suspect]
     Dates: start: 20050901
  3. ATENOLOL [Concomitant]
  4. VEXOL (RIMEXOLONE) EYE DROPS [Concomitant]
  5. TIMOPTIC (TIMOLOL MALEATE) EYE DROPS [Concomitant]
  6. ALPHAGAN (BRIMONIDINE TARTRATE) EYE DROPS [Concomitant]
  7. OLMESARTAN MEDOXOMIL (OLMESARTAN MEDOXOMIL) [Concomitant]
  8. ALKA-SELTZER (ACETYLSALICYLIC ACID, SODIUM BICARBONATE, CITRIC ACID) [Concomitant]
  9. TYLENOL [Concomitant]
  10. VALIUM [Concomitant]
  11. DILAUDID [Concomitant]

REACTIONS (6)
  - ACTIVATED PARTIAL THROMBOPLASTIN TIME PROLONGED [None]
  - ANAEMIA [None]
  - DISEASE PROGRESSION [None]
  - INTERNATIONAL NORMALISED RATIO INCREASED [None]
  - PROTHROMBIN TIME PROLONGED [None]
  - THROMBOCYTOPENIA [None]
